FAERS Safety Report 5088051-8 (Version None)
Quarter: 2006Q3

REPORT INFORMATION
  Report Type: 
  Country: None (occurrence: None)
  Receive Date: 20060822
  Receipt Date: 20060822
  Transmission Date: 20061208
  Serious: Yes (Hospitalization)
  Sender: FDA-Public Use
  Company Number: None

PATIENT
  Sex: Female
  Weight: 118.64 kg

DRUGS (3)
  1. CISPLATIN [Suspect]
     Dosage: 423 MG
  2. NAVELBINE [Suspect]
     Dosage: 507 MG
  3. VANCOMYCIN [Concomitant]

REACTIONS (1)
  - SEPSIS [None]
